FAERS Safety Report 19683703 (Version 3)
Quarter: 2021Q3

REPORT INFORMATION
  Report Type: Report from Study
  Country: None (occurrence: US)
  Receive Date: 20210811
  Receipt Date: 20210928
  Transmission Date: 20211014
  Serious: Yes (Hospitalization, Other)
  Sender: FDA-Public Use
  Company Number: US-ABBVIE-21K-163-4030483-00

PATIENT
  Age: 66 Year
  Sex: Female
  Weight: 83.99 kg

DRUGS (9)
  1. ATORVASTATIN [Concomitant]
     Active Substance: ATORVASTATIN
     Indication: BLOOD CHOLESTEROL INCREASED
  2. AMLODIPINE [Concomitant]
     Active Substance: AMLODIPINE BESYLATE
     Indication: HYPERTENSION
  3. ASPIRIN. [Concomitant]
     Active Substance: ASPIRIN
     Indication: PRODUCT USED FOR UNKNOWN INDICATION
  4. MODERNA COVID?19 VACCINE [Concomitant]
     Active Substance: CX-024414
     Indication: COVID-19 IMMUNISATION
     Route: 030
     Dates: start: 20210217, end: 20210217
  5. HUMIRA [Suspect]
     Active Substance: ADALIMUMAB
     Indication: RHEUMATOID ARTHRITIS
     Dosage: CITRATE FREE
     Route: 058
  6. MODERNA COVID?19 VACCINE [Concomitant]
     Active Substance: CX-024414
     Route: 030
     Dates: start: 20210318, end: 20210318
  7. HYDRALAZINE [Concomitant]
     Active Substance: HYDRALAZINE HYDROCHLORIDE
     Indication: HYPERTENSION
  8. LEVOTHYROXINE. [Concomitant]
     Active Substance: LEVOTHYROXINE
     Indication: THYROID DISORDER
  9. METOPROLOL. [Concomitant]
     Active Substance: METOPROLOL
     Indication: BLOOD PRESSURE MEASUREMENT

REACTIONS (2)
  - Renal failure [Not Recovered/Not Resolved]
  - Hypertension [Not Recovered/Not Resolved]

NARRATIVE: CASE EVENT DATE: 20210709
